FAERS Safety Report 7030170-0 (Version None)
Quarter: 2010Q4

REPORT INFORMATION
  Report Type: 
  Country: None (occurrence: None)
  Receive Date: 20101006
  Receipt Date: 20100923
  Transmission Date: 20110411
  Serious: Yes (Hospitalization, Other)
  Sender: FDA-Public Use
  Company Number: US-ELI_LILLY_AND_COMPANY-US200912001758

PATIENT
  Sex: Male

DRUGS (17)
  1. FORTEO [Suspect]
     Indication: OSTEOPOROSIS
     Dosage: 20 UG, DAILY (1/D)
     Dates: end: 20090101
  2. FORTEO [Suspect]
     Dosage: 20 UG, DAILY (1/D)
     Dates: start: 20090308
  3. POTASSIUM [Concomitant]
     Dosage: 20 MEQ, UNK
  4. CYMBALTA [Concomitant]
     Dosage: 60 MG, UNK
  5. ACTOS [Concomitant]
     Dosage: 15 MG, UNK
  6. FUROSEMIDE [Concomitant]
     Dosage: 40 MG, UNK
  7. IRON [Concomitant]
     Dosage: 200 MG, UNK
  8. COUMADIN [Concomitant]
     Dosage: 2 MG, UNK
  9. LEVOTHYROXINE SODIUM [Concomitant]
     Dosage: 100 MG, UNK
  10. GABAPENTIN [Concomitant]
     Dosage: 300 MG, 3/D
  11. PREDNISONE [Concomitant]
     Dosage: 5 MG, 2/D
  12. CARBIDOPA + LEVODOPA [Concomitant]
  13. METHADONE [Concomitant]
     Dosage: 5 MG, UNK
  14. FENTANYL [Concomitant]
     Dosage: 150 MG, UNK
  15. NOVOLOG [Concomitant]
  16. MORPHINE SULFATE [Concomitant]
     Dosage: 15 MG, UNK
  17. ALPRAZOLAM [Concomitant]
     Dosage: 0.5 MG, UNK

REACTIONS (6)
  - CEREBROVASCULAR ACCIDENT [None]
  - HOSPITALISATION [None]
  - INTERVERTEBRAL DISC OPERATION [None]
  - MYOCARDIAL INFARCTION [None]
  - STAPHYLOCOCCAL INFECTION [None]
  - STAPHYLOCOCCAL SEPSIS [None]
